FAERS Safety Report 13300577 (Version 1)
Quarter: 2017Q1

REPORT INFORMATION
  Report Type: Spontaneous
  Country: US (occurrence: US)
  Receive Date: 20170307
  Receipt Date: 20170307
  Transmission Date: 20170428
  Serious: No
  Sender: FDA-Public Use
  Company Number: US-AUROBINDO-AUR-APU-2016-08535

PATIENT
  Sex: Female

DRUGS (1)
  1. METFORMIN HYDROCHLORIDE TABLETS USP 500 MG [Suspect]
     Active Substance: METFORMIN HYDROCHLORIDE
     Indication: DIABETES MELLITUS
     Dosage: 1 DF, ONCE A DAY
     Route: 048

REACTIONS (4)
  - Product odour abnormal [Recovered/Resolved]
  - Diarrhoea [Recovered/Resolved]
  - Urine odour abnormal [Recovered/Resolved]
  - Drug ineffective [Recovered/Resolved]
